FAERS Safety Report 8209183-9 (Version None)
Quarter: 2012Q1

REPORT INFORMATION
  Report Type: 
  Country: None (occurrence: None)
  Receive Date: 20120314
  Receipt Date: 20120306
  Transmission Date: 20120608
  Serious: Yes (Life-Threatening, Hospitalization, Other)
  Sender: FDA-Public Use
  Company Number: US-BAYER-2012-005643

PATIENT
  Age: 44 Year
  Sex: Female
  Weight: 67.12 kg

DRUGS (10)
  1. YAZ [Suspect]
     Dosage: UNK
     Dates: start: 20070901, end: 20080101
  2. NEURONTIN [Concomitant]
     Dosage: 600 MG, TID
  3. RANITIDINE [Concomitant]
     Dosage: 75 MG, UNK
  4. LEVOTHYROXINE SODIUM [Concomitant]
     Dosage: 50 MCG/24HR, UNK
     Route: 048
  5. BISACODYL [Concomitant]
     Dosage: 5 MG, QD
  6. CYCLOBENZAPRINE HCL [Concomitant]
     Dosage: 10 MG, TID
     Route: 048
  7. BACLOFEN [Concomitant]
     Dosage: 20 MG, QID
     Route: 048
  8. IBUPROFEN (ADVIL) [Concomitant]
  9. ESTROVEN [Concomitant]
  10. ULTRAM [Concomitant]
     Dosage: 50 MG, PRN
     Route: 048

REACTIONS (11)
  - PULMONARY EMBOLISM [None]
  - DYSPNOEA [None]
  - PAIN IN EXTREMITY [None]
  - MUSCLE SPASMS [None]
  - CHEST PAIN [None]
  - SCAR [None]
  - PULMONARY FIBROSIS [None]
  - DEPRESSION [None]
  - DEEP VEIN THROMBOSIS [None]
  - ABDOMINAL PAIN UPPER [None]
  - COORDINATION ABNORMAL [None]
